FAERS Safety Report 6808551-7 (Version None)
Quarter: 2010Q2

REPORT INFORMATION
  Report Type: 
  Country: None (occurrence: None)
  Receive Date: 20100629
  Receipt Date: 20090713
  Transmission Date: 20101027
  Serious: No
  Sender: FDA-Public Use
  Company Number: US-PFIZER INC-2009239693

PATIENT
  Age: 72 Year
  Sex: Female

DRUGS (1)
  1. XANAX [Suspect]

REACTIONS (3)
  - ARTHRALGIA [None]
  - ARTHRITIS [None]
  - NEURALGIA [None]
